FAERS Safety Report 4821628-0 (Version None)
Quarter: 2005Q4

REPORT INFORMATION
  Report Type: 
  Country: None (occurrence: None)
  Receive Date: 20051107
  Receipt Date: 20050922
  Transmission Date: 20060501
  Serious: Yes (Hospitalization)
  Sender: FDA-Public Use
  Company Number: 2005UW14092

PATIENT
  Sex: Male

DRUGS (2)
  1. SEROQUEL [Suspect]
     Route: 064
  2. ACETAMINOPHEN [Suspect]
     Route: 064

REACTIONS (9)
  - ALANINE AMINOTRANSFERASE INCREASED [None]
  - ANALGESIC DRUG LEVEL INCREASED [None]
  - DRUG EXPOSURE DURING PREGNANCY [None]
  - INTENTIONAL OVERDOSE [None]
  - NEONATAL DISORDER [None]
  - NEONATAL TACHYPNOEA [None]
  - OEDEMA [None]
  - OEDEMA NEONATAL [None]
  - TACHYPNOEA [None]
